FAERS Safety Report 4798566-5 (Version None)
Quarter: 2005Q4

REPORT INFORMATION
  Report Type: 
  Country: None (occurrence: None)
  Receive Date: 20051014
  Receipt Date: 20051006
  Transmission Date: 20060501
  Serious: Yes (Disabling)
  Sender: FDA-Public Use
  Company Number: PR-MERCK-0510USA06239

PATIENT
  Age: 55 Year
  Sex: Male

DRUGS (6)
  1. VIOXX [Suspect]
     Indication: ARTHRALGIA
     Route: 048
  2. VIOXX [Suspect]
     Indication: MUSCULOSKELETAL DISORDER
     Route: 048
  3. CELEBREX [Suspect]
     Indication: ARTHRALGIA
     Route: 065
  4. CELEBREX [Suspect]
     Indication: MUSCULOSKELETAL DISORDER
     Route: 065
  5. BEXTRA [Suspect]
     Indication: ARTHRALGIA
     Route: 065
  6. BEXTRA [Suspect]
     Indication: MUSCULOSKELETAL DISORDER
     Route: 065

REACTIONS (20)
  - ACTIVITIES OF DAILY LIVING IMPAIRED [None]
  - ANHEDONIA [None]
  - APPETITE DISORDER [None]
  - ASTHENIA [None]
  - CARDIOVASCULAR DISORDER [None]
  - CHEST PAIN [None]
  - DEPRESSION [None]
  - DIFFICULTY IN WALKING [None]
  - DISTURBANCE IN ATTENTION [None]
  - EMOTIONAL DISORDER [None]
  - FATIGUE [None]
  - FEELINGS OF WORTHLESSNESS [None]
  - HYPOKINESIA [None]
  - IMPAIRED SELF-CARE [None]
  - INSOMNIA [None]
  - OEDEMA PERIPHERAL [None]
  - PAIN [None]
  - PSYCHOMOTOR RETARDATION [None]
  - SOCIAL PROBLEM [None]
  - WEIGHT ABNORMAL [None]
